FAERS Safety Report 5443484-2 (Version None)
Quarter: 2007Q3

REPORT INFORMATION
  Report Type: 
  Country: None (occurrence: None)
  Receive Date: 20070905
  Receipt Date: 20070828
  Transmission Date: 20080115
  Serious: Yes (Other)
  Sender: FDA-Public Use
  Company Number: US-GENENTECH-246828

PATIENT
  Sex: Female

DRUGS (2)
  1. AVASTIN [Suspect]
     Indication: COLORECTAL CANCER METASTATIC
  2. CHEMOTHERAPY TREATMENTS NOS [Concomitant]
     Indication: COLORECTAL CANCER METASTATIC

REACTIONS (1)
  - PORTAL HYPERTENSION [None]
